FAERS Safety Report 13883481 (Version 1)
Quarter: 2017Q3

REPORT INFORMATION
  Report Type: Other
  Country: GB (occurrence: AU)
  Receive Date: 20170818
  Receipt Date: 20170818
  Transmission Date: 20171127
  Serious: Yes (Other)
  Sender: FDA-Public Use
  Company Number: AU-INTERNATIONAL MEDICATION SYSTEMS, LIMITED-2024804

PATIENT
  Age: 9 Year
  Sex: Male

DRUGS (1)
  1. EPIPEN JR [Suspect]
     Active Substance: EPINEPHRINE
     Indication: INJURY ASSOCIATED WITH DEVICE

REACTIONS (8)
  - Pain in extremity [Unknown]
  - Injection site pain [Unknown]
  - Injection site haemorrhage [Unknown]
  - Capillary nail refill test abnormal [Unknown]
  - Accidental exposure to product [Unknown]
  - Injection site swelling [Unknown]
  - Pallor [Unknown]
  - Anxiety [Unknown]
